FAERS Safety Report 8307593 (Version 2)
Quarter: 2012Q4

REPORT INFORMATION
  Report Type: 
  Country: US (occurrence: US)
  Receive Date: 20111222
  Receipt Date: 20121218
  Transmission Date: 20130627
  Serious: Yes (Other)
  Sender: FDA-Public Use
  Company Number: US-ROCHE-803002

PATIENT
  Age: 26 Year
  Sex: Female
  Weight: 47.67 kg

DRUGS (1)
  1. ACCUTANE [Suspect]
     Indication: ACNE
     Dosage: 40 mg in am and 80 mg at pm
     Route: 065
     Dates: start: 199003, end: 199007

REACTIONS (8)
  - Colitis ulcerative [Unknown]
  - Emotional distress [Unknown]
  - Inflammatory bowel disease [Unknown]
  - Haemorrhoids [Unknown]
  - Urinary tract infection [Recovered/Resolved]
  - Laryngitis [Unknown]
  - Arthralgia [Unknown]
  - Alanine aminotransferase increased [Unknown]
